FAERS Safety Report 6443846-0 (Version None)
Quarter: 2009Q4

REPORT INFORMATION
  Report Type: 
  Country: None (occurrence: None)
  Receive Date: 20091113
  Receipt Date: 20091028
  Transmission Date: 20100525
  Serious: Yes (Other)
  Sender: FDA-Public Use
  Company Number: 426625

PATIENT
  Age: 64 Year
  Sex: Female
  Weight: 93 kg

DRUGS (12)
  1. PAMIDRONATE DISODIUM [Suspect]
     Indication: DRUG USE FOR UNKNOWN INDICATION
     Dosage: 60 MG, 1 DAY, INTRAVENOUS (NOT OTHERWISE SPECIFIED)
     Route: 042
  2. ARANESP [Concomitant]
  3. ASPIRIN [Concomitant]
  4. AVAPRO [Concomitant]
  5. NPH INSULIN [Concomitant]
  6. LASIX [Concomitant]
  7. LIPITOR [Concomitant]
  8. NICODERM [Concomitant]
  9. (SENOKOT /00142201/) [Concomitant]
  10. SYNTHROID [Concomitant]
  11. VENTOLIN [Concomitant]
  12. (VITAMIN B12 /00056201/) [Concomitant]

REACTIONS (4)
  - EYE PAIN [None]
  - EYELID PTOSIS [None]
  - HEADACHE [None]
  - MYOSITIS [None]
